FAERS Safety Report 12665918 (Version 1)
Quarter: 2016Q3

REPORT INFORMATION
  Report Type: Spontaneous
  Country: US (occurrence: US)
  Receive Date: 20160818
  Receipt Date: 20160818
  Transmission Date: 20161109
  Serious: No
  Sender: FDA-Public Use
  Company Number: US-ALLERGAN-1655953US

PATIENT
  Age: 69 Year
  Sex: Female
  Weight: 81.18 kg

DRUGS (1)
  1. KYBELLA [Suspect]
     Active Substance: DEOXYCHOLIC ACID
     Indication: FAT TISSUE INCREASED
     Dosage: 3 ML, SINGLE
     Route: 058
     Dates: start: 20160401, end: 20160401

REACTIONS (5)
  - Erythema [Recovered/Resolved]
  - Swelling [Recovered/Resolved]
  - Pruritus [Recovered/Resolved]
  - Rash macular [Recovered/Resolved]
  - Oedema [Recovered/Resolved]

NARRATIVE: CASE EVENT DATE: 201604
